FAERS Safety Report 24082348 (Version 3)
Quarter: 2024Q3

REPORT INFORMATION
  Report Type: Report from Study
  Country: US (occurrence: US)
  Receive Date: 20240712
  Receipt Date: 20240926
  Transmission Date: 20241017
  Serious: No
  Sender: SANDOZ
  Company Number: US-SANDOZ-SDZ2024US056046

PATIENT
  Age: 13 Year
  Sex: Male

DRUGS (6)
  1. OMNITROPE [Suspect]
     Active Substance: SOMATROPIN
     Dosage: 1.8 MG, QD (2 DOSE EVERY), 10 MG / 1.5 ML
     Route: 058
     Dates: start: 20240606
  2. OMNITROPE [Suspect]
     Active Substance: SOMATROPIN
     Dosage: 1.8 MG, QD (2 DOSE EVERY), 10 MG / 1.5 ML
     Route: 058
     Dates: start: 20240606
  3. OMNITROPE [Suspect]
     Active Substance: SOMATROPIN
     Dosage: 0.4 ML ON THE 5TH DAY
     Route: 065
  4. OMNITROPE [Suspect]
     Active Substance: SOMATROPIN
     Dosage: 0.4 ML ON THE 5TH DAY
     Route: 065
  5. OMNITROPE [Suspect]
     Active Substance: SOMATROPIN
     Indication: Short stature
     Dosage: 10 MG 2 DOSE EVERY DAY
     Route: 030
     Dates: start: 20240529
  6. OMNITROPE [Suspect]
     Active Substance: SOMATROPIN
     Indication: Short stature
     Dosage: 10 MG 2 DOSE EVERY DAY
     Route: 030
     Dates: start: 20240529

REACTIONS (8)
  - Stress [Unknown]
  - Injection site injury [Unknown]
  - Drug ineffective [Unknown]
  - Exposure via skin contact [Unknown]
  - Wrong technique in product usage process [Unknown]
  - Accidental exposure to product [Unknown]
  - Device leakage [Unknown]
  - Incorrect dose administered [Unknown]

NARRATIVE: CASE EVENT DATE: 20240606
